FAERS Safety Report 10113379 (Version 1)
Quarter: 2014Q2

REPORT INFORMATION
  Report Type: Spontaneous
  Country: GB (occurrence: GB)
  Receive Date: 20140425
  Receipt Date: 20140425
  Transmission Date: 20141212
  Serious: Yes (Other)
  Sender: FDA-Public Use
  Company Number: GB-BAYER-2014-057521

PATIENT
  Age: 34 Year
  Sex: Female
  Weight: 83 kg

DRUGS (1)
  1. MIRENA [Suspect]
     Indication: CONTRACEPTION
     Dosage: 20 MCG/24HR, CONT
     Route: 015
     Dates: start: 20100405

REACTIONS (20)
  - Anger [Not Recovered/Not Resolved]
  - Anxiety [Not Recovered/Not Resolved]
  - Abdominal distension [Unknown]
  - Crying [Unknown]
  - Depression [Not Recovered/Not Resolved]
  - Emotional disorder [Unknown]
  - Fatigue [Unknown]
  - Hair disorder [Unknown]
  - Alopecia [Not Recovered/Not Resolved]
  - Headache [Unknown]
  - Irritability [Not Recovered/Not Resolved]
  - Libido decreased [Not Recovered/Not Resolved]
  - Asthenia [Unknown]
  - Mood altered [Not Recovered/Not Resolved]
  - Dysmenorrhoea [Unknown]
  - Acne [Unknown]
  - Seborrhoea [Unknown]
  - Food craving [Unknown]
  - Vulvovaginal dryness [Not Recovered/Not Resolved]
  - Weight increased [Unknown]
